FAERS Safety Report 6173938-5 (Version None)
Quarter: 2009Q2

REPORT INFORMATION
  Report Type: 
  Country: None (occurrence: None)
  Receive Date: 20090430
  Receipt Date: 20090421
  Transmission Date: 20091009
  Serious: Yes (Hospitalization, Other)
  Sender: FDA-Public Use
  Company Number: ZA-PFIZER INC-2009202267

PATIENT

DRUGS (4)
  1. GEODON [Suspect]
     Dosage: UNK
     Route: 048
  2. GEODON [Suspect]
     Dosage: FREQUENCY: MARNE, UNK;
     Route: 048
  3. GRANDPA HEADACHE POWDER [Concomitant]
  4. ALL OTHER THERAPEUTIC PRODUCTS [Concomitant]

REACTIONS (3)
  - HEPATITIS [None]
  - LIVER FUNCTION TEST ABNORMAL [None]
  - SINOBRONCHITIS [None]
